FAERS Safety Report 17391616 (Version 1)
Quarter: 2020Q1

REPORT INFORMATION
  Report Type: Spontaneous
  Country: GB (occurrence: GB)
  Receive Date: 20200207
  Receipt Date: 20200207
  Transmission Date: 20200409
  Serious: Yes (Other)
  Sender: FDA-Public Use
  Company Number: GB-MYLANLABS-2020M1013569

PATIENT
  Age: 21 Year
  Sex: Female
  Weight: 37.5 kg

DRUGS (2)
  1. TERBINAFINE. [Suspect]
     Active Substance: TERBINAFINE
     Indication: ONYCHOMYCOSIS
     Dosage: 250 MILLIGRAM, QD
     Route: 048
     Dates: start: 20191105, end: 20191109
  2. IRON [Concomitant]
     Active Substance: IRON
     Indication: MINERAL SUPPLEMENTATION
     Dosage: UNK

REACTIONS (5)
  - Swelling [Unknown]
  - Skin exfoliation [Unknown]
  - Erythema [Unknown]
  - Papule [Unknown]
  - Pruritus [Unknown]

NARRATIVE: CASE EVENT DATE: 20191105
